FAERS Safety Report 8513389-9 (Version None)
Quarter: 2012Q3

REPORT INFORMATION
  Report Type: 
  Country: None (occurrence: None)
  Receive Date: 20120717
  Receipt Date: 20120705
  Transmission Date: 20120928
  Serious: Yes (Other)
  Sender: FDA-Public Use
  Company Number: NL-AMGEN-NLDSP2012043012

PATIENT
  Age: 76 Year
  Sex: Male

DRUGS (9)
  1. IBUPROFEN [Concomitant]
     Dosage: UNK
  2. PHOSPHORIC ACID [Concomitant]
     Dosage: UNK
  3. ENBREL [Suspect]
     Indication: PSORIATIC ARTHROPATHY
     Dosage: 50 MG, WEEKLY
     Dates: start: 20090101
  4. TAMBOCOR [Concomitant]
     Dosage: UNK
  5. SINTROM [Concomitant]
     Dosage: UNK
  6. SOTALOL HCL [Concomitant]
     Dosage: UNK
  7. PREDNISONE [Concomitant]
     Dosage: UNK
  8. METOPROLOL [Concomitant]
     Dosage: UNK
  9. CALCIUM [Concomitant]
     Dosage: UNK

REACTIONS (1)
  - TRANSIENT ISCHAEMIC ATTACK [None]
